FAERS Safety Report 19575831 (Version 1)
Quarter: 2021Q3

REPORT INFORMATION
  Report Type: Other
  Country: CN (occurrence: CN)
  Receive Date: 20210719
  Receipt Date: 20210719
  Transmission Date: 20211014
  Serious: Yes (Other)
  Sender: FDA-Public Use
  Company Number: CN-ROCHE-2869345

PATIENT

DRUGS (1)
  1. RITUXIMAB. [Suspect]
     Active Substance: RITUXIMAB
     Indication: DIFFUSE LARGE B-CELL LYMPHOMA
     Route: 065

REACTIONS (28)
  - Oral neoplasm [Unknown]
  - Rectal neoplasm [Unknown]
  - Pancreatic neoplasm [Unknown]
  - Renal neoplasm [Unknown]
  - Leukaemia [Unknown]
  - Lymphocytic leukaemia [Unknown]
  - Kaposi^s sarcoma [Unknown]
  - Pharyngeal neoplasm [Unknown]
  - Lung neoplasm [Unknown]
  - Breast neoplasm [Unknown]
  - Thyroid neoplasm [Unknown]
  - Neoplasm [Unknown]
  - Colon neoplasm [Unknown]
  - Hepatobiliary neoplasm [Unknown]
  - Neoplasm skin [Unknown]
  - Ovarian neoplasm [Unknown]
  - Hodgkin^s disease [Unknown]
  - Plasma cell myeloma [Unknown]
  - Leukaemia monocytic [Unknown]
  - Haematological malignancy [Unknown]
  - Gastric neoplasm [Unknown]
  - Malignant melanoma [Unknown]
  - Uterine neoplasm [Unknown]
  - Bladder neoplasm [Unknown]
  - Myeloid leukaemia [Unknown]
  - Oesophageal neoplasm [Unknown]
  - Bronchial neoplasm [Unknown]
  - Neoplasm prostate [Unknown]
